FAERS Safety Report 15989142 (Version 2)
Quarter: 2019Q2

REPORT INFORMATION
  Report Type: Report from Study
  Country: IT (occurrence: IT)
  Receive Date: 20190221
  Receipt Date: 20190513
  Transmission Date: 20190711
  Serious: Yes (Other)
  Sender: FDA-Public Use
  Company Number: IT-ACCORD-100634

PATIENT
  Age: 46 Year
  Sex: Female
  Weight: 55 kg

DRUGS (6)
  1. TOTALIP [Concomitant]
     Active Substance: ATORVASTATIN
     Dosage: STRENGTH: 10 MG
     Route: 048
  2. MEDROL [Concomitant]
     Active Substance: METHYLPREDNISOLONE
     Indication: THROMBOCYTOPENIA
     Dosage: STRENGTH: 4 MG
     Route: 048
  3. TEMOZOLOMIDE. [Suspect]
     Active Substance: TEMOZOLOMIDE
     Indication: GLIOBLASTOMA
     Dosage: CUMULATIVE DOSE WAS ALSO 1540 MG AND PATIENT ALSO RECEIVED DOSAGE OF 110 MG
     Route: 048
     Dates: start: 20171219, end: 20180129
  4. PANTORC [Concomitant]
     Active Substance: PANTOPRAZOLE SODIUM
     Dosage: STRENGTH: 40 MG
     Route: 048
  5. KEPPRA [Concomitant]
     Active Substance: LEVETIRACETAM
     Indication: EPILEPSY
     Dosage: STRENGTH: 1000 MG
     Route: 048
  6. SOLDESAM [Concomitant]
     Active Substance: DEXAMETHASONE
     Route: 030

REACTIONS (4)
  - Vertigo [Recovering/Resolving]
  - Thrombocytopenia [Recovering/Resolving]
  - Visual impairment [Recovering/Resolving]
  - Lymphopenia [Recovering/Resolving]

NARRATIVE: CASE EVENT DATE: 20180101
